FAERS Safety Report 14198121 (Version 1)
Quarter: 2017Q4

REPORT INFORMATION
  Report Type: Spontaneous
  Country: US (occurrence: US)
  Receive Date: 20171117
  Receipt Date: 20171117
  Transmission Date: 20180321
  Serious: Yes (Other)
  Sender: FDA-Public Use
  Company Number: US-AMGEN-USASP2017157030

PATIENT
  Age: 70 Year
  Sex: Male
  Weight: 86.17 kg

DRUGS (4)
  1. VP-16 [Concomitant]
     Active Substance: ETOPOSIDE
     Indication: NEOPLASM MALIGNANT
     Dosage: 181 MG, Q4WK (DAY 1, 2 AND 3)
     Dates: start: 20171011, end: 20171013
  2. NEULASTA [Suspect]
     Active Substance: PEGFILGRASTIM
     Indication: PRODUCT USED FOR UNKNOWN INDICATION
     Dosage: 6 MG, Q4WK (Q28 DAYS)
     Route: 065
     Dates: start: 20171013
  3. CARBOPLATIN. [Concomitant]
     Active Substance: CARBOPLATIN
     Indication: NEOPLASM MALIGNANT
     Dosage: 568.9 MG, Q4WK
     Dates: start: 20171011
  4. DEXAMETHASONE. [Concomitant]
     Active Substance: DEXAMETHASONE
     Indication: PREMEDICATION
     Dosage: 10 MG, Q4WK (DAY 1, 2, 3)
     Dates: start: 20171011, end: 20171013

REACTIONS (3)
  - Dyspnoea [Recovered/Resolved]
  - Accidental exposure to product [Unknown]
  - Fluid retention [Unknown]

NARRATIVE: CASE EVENT DATE: 201710
